FAERS Safety Report 23498252 (Version 1)
Quarter: 2024Q1

REPORT INFORMATION
  Report Type: Other
  Country: CA (occurrence: CA)
  Receive Date: 20240207
  Receipt Date: 20240207
  Transmission Date: 20240409
  Serious: Yes (Other)
  Sender: FDA-Public Use
  Company Number: CA-KARYOPHARM-2024KPT000192

PATIENT

DRUGS (11)
  1. SELINEXOR [Suspect]
     Active Substance: SELINEXOR
     Indication: Plasma cell myeloma
  2. BELANTAMAB MAFODOTIN [Concomitant]
     Active Substance: BELANTAMAB MAFODOTIN
  3. CARFILZOMIB [Concomitant]
     Active Substance: CARFILZOMIB
  4. CISPLATIN [Concomitant]
     Active Substance: CISPLATIN
  5. CYCLOPHOSPHAMIDE [Concomitant]
     Active Substance: CYCLOPHOSPHAMIDE
  6. DARATUMUMAB [Concomitant]
     Active Substance: DARATUMUMAB
  7. DEXAMETHASONE SODIUM PHOSPHATE [Concomitant]
     Active Substance: DEXAMETHASONE PHOSPHATE\DEXAMETHASONE SODIUM PHOSPHATE
  8. DOXORUBICIN [Concomitant]
     Active Substance: DOXORUBICIN
  9. ETOPOSIDE [Concomitant]
     Active Substance: ETOPOSIDE
  10. POMALIDOMIDE [Concomitant]
     Active Substance: POMALIDOMIDE
  11. THALIDOMIDE [Concomitant]
     Active Substance: THALIDOMIDE

REACTIONS (1)
  - Neoplasm progression [Unknown]
